FAERS Safety Report 15094890 (Version 2)
Quarter: 2018Q3

REPORT INFORMATION
  Report Type: Spontaneous
  Country: CA (occurrence: CA)
  Receive Date: 20180701
  Receipt Date: 20180712
  Transmission Date: 20181010
  Serious: Yes (Other)
  Sender: FDA-Public Use
  Company Number: CA-BEH-2018092229

PATIENT
  Age: 68 Year
  Sex: Male
  Weight: 87.1 kg

DRUGS (8)
  1. VALSARTAN/HYDROCHLOROTHIAZIDE [Concomitant]
     Active Substance: HYDROCHLOROTHIAZIDE\VALSARTAN
     Route: 065
  2. AMLODIPINE [Concomitant]
     Active Substance: AMLODIPINE BESYLATE
     Dosage: 10 MG, OD
     Route: 048
  3. HYDROXYZINE [Concomitant]
     Active Substance: HYDROXYZINE HYDROCHLORIDE
     Dosage: 10 MG, Q4H
     Route: 048
  4. ALBUREX [Suspect]
     Active Substance: ALBUMIN HUMAN
     Indication: HYPOPROTEINAEMIA
     Dosage: 100 ML, OD
     Route: 042
     Dates: start: 20180624, end: 20180624
  5. METFORMIN [Concomitant]
     Active Substance: METFORMIN HYDROCHLORIDE
     Dosage: 1 G, BID
     Route: 048
  6. ALBUREX [Suspect]
     Active Substance: ALBUMIN HUMAN
     Indication: OEDEMA
     Dosage: 25 ML, OD
     Route: 042
     Dates: start: 20180625, end: 20180625
  7. CRESTOR [Concomitant]
     Active Substance: ROSUVASTATIN CALCIUM
     Dosage: 40 MG, OD
     Route: 065
  8. FLOMAX [Concomitant]
     Active Substance: TAMSULOSIN HYDROCHLORIDE
     Dosage: 0.4 MG, BID
     Route: 065

REACTIONS (8)
  - Nausea [Recovered/Resolved]
  - Haematuria [Unknown]
  - Body temperature increased [Recovered/Resolved]
  - Bacteriuria [Unknown]
  - Proteinuria [Unknown]
  - Sepsis [Unknown]
  - Heart rate increased [Recovered/Resolved]
  - Neoplasm malignant [Unknown]

NARRATIVE: CASE EVENT DATE: 20180625
